FAERS Safety Report 8231414-X (Version None)
Quarter: 2012Q1

REPORT INFORMATION
  Report Type: 
  Country: None (occurrence: None)
  Receive Date: 20120320
  Receipt Date: 20120311
  Transmission Date: 20120608
  Serious: Yes (Hospitalization, Other)
  Sender: FDA-Public Use
  Company Number: 217001

PATIENT
  Age: 58 Year
  Sex: Female
  Weight: 78.5 kg

DRUGS (1)
  1. INNOHEP [Suspect]
     Indication: DIALYSIS
     Dosage: 0,35 ML

REACTIONS (1)
  - THROMBOSIS IN DEVICE [None]
